FAERS Safety Report 10361411 (Version 2)
Quarter: 2014Q4

REPORT INFORMATION
  Report Type: Report from Study
  Country: DE (occurrence: DE)
  Receive Date: 20140805
  Receipt Date: 20141029
  Transmission Date: 20150528
  Serious: Yes (Other)
  Sender: FDA-Public Use
  Company Number: DE-ABBVIE-14K-062-1266712-00

PATIENT
  Age: 72 Year
  Sex: Male
  Weight: 72.8 kg

DRUGS (2)
  1. CORTISONE [Concomitant]
     Active Substance: CORTISONE\HYDROCORTISONE
     Indication: PRODUCT USED FOR UNKNOWN INDICATION
  2. HUMIRA [Suspect]
     Active Substance: ADALIMUMAB
     Indication: PSORIATIC ARTHROPATHY
     Route: 058
     Dates: start: 20130617, end: 20140622

REACTIONS (8)
  - Fall [Recovering/Resolving]
  - Myalgia [Not Recovered/Not Resolved]
  - Cardiovascular disorder [Recovering/Resolving]
  - C-reactive protein increased [Unknown]
  - Fall [Recovering/Resolving]
  - Drug effect decreased [Recovering/Resolving]
  - Syncope [Unknown]
  - Orthostatic intolerance [Unknown]

NARRATIVE: CASE EVENT DATE: 20130920
